FAERS Safety Report 8095085-8 (Version None)
Quarter: 2012Q1

REPORT INFORMATION
  Report Type: 
  Country: None (occurrence: None)
  Receive Date: 20120125
  Receipt Date: 20120118
  Transmission Date: 20120608
  Serious: Yes (Other)
  Sender: FDA-Public Use
  Company Number: 7107348

PATIENT
  Age: 80 Year
  Sex: Female

DRUGS (1)
  1. LEVOTHYROXINE SODIUM [Suspect]
     Indication: PRODUCT USED FOR UNKNOWN INDICATION
     Dosage: 4 DF (2 DF, 2 IN 1 D)
     Route: 048
     Dates: start: 20111223, end: 20111225

REACTIONS (6)
  - MEDICATION ERROR [None]
  - FALL [None]
  - TACHYCARDIA [None]
  - OVERDOSE [None]
  - WRONG DRUG ADMINISTERED [None]
  - ARTHROPATHY [None]
